FAERS Safety Report 21882841 (Version 1)
Quarter: 2023Q1

REPORT INFORMATION
  Report Type: Spontaneous
  Country: FR (occurrence: FR)
  Receive Date: 20230119
  Receipt Date: 20230119
  Transmission Date: 20230418
  Serious: Yes (Hospitalization, Other)
  Sender: FDA-Public Use
  Company Number: FR-AFSSAPS-NY2023000012

PATIENT
  Age: 61 Year
  Sex: Male
  Weight: 145 kg

DRUGS (5)
  1. ESCITALOPRAM OXALATE [Suspect]
     Active Substance: ESCITALOPRAM OXALATE
     Indication: Mixed anxiety and depressive disorder
     Dosage: 20 MILLIGRAM, ONCE A DAY
     Route: 048
     Dates: start: 2020, end: 20221209
  2. LOVENOX [Suspect]
     Active Substance: ENOXAPARIN SODIUM
     Indication: Pulmonary embolism
     Dosage: 6000 INTERNATIONAL UNIT
     Route: 058
     Dates: start: 20221206, end: 20221206
  3. LEVETIRACETAM [Concomitant]
     Active Substance: LEVETIRACETAM
     Indication: Epilepsy
     Dosage: 1 GRAM, TWO TIMES A DAY
     Route: 048
     Dates: start: 20221115
  4. OXAZEPAM [Concomitant]
     Active Substance: OXAZEPAM
     Indication: Mixed anxiety and depressive disorder
     Dosage: 10 MILLIGRAM, 3 TIMES A DAY
     Route: 048
     Dates: start: 20221206
  5. ALPRAZOLAM [Concomitant]
     Active Substance: ALPRAZOLAM
     Indication: Mixed anxiety and depressive disorder
     Dosage: 0.5 MILLIGRAM, ONCE A DAY
     Route: 048

REACTIONS (3)
  - Stroke in evolution [Recovering/Resolving]
  - Contraindicated product prescribed [Recovered/Resolved]
  - Labelled drug-disease interaction medication error [Recovered/Resolved]

NARRATIVE: CASE EVENT DATE: 20221206
